FAERS Safety Report 9346950 (Version 1)
Quarter: 2013Q2

REPORT INFORMATION
  Report Type: Spontaneous
  Country: CA (occurrence: CA)
  Receive Date: 20130613
  Receipt Date: 20130613
  Transmission Date: 20140414
  Serious: Yes (Hospitalization)
  Sender: FDA-Public Use
  Company Number: CA-BAXTER-2013BAX020795

PATIENT
  Age: 7 Month
  Sex: Female

DRUGS (2)
  1. DIANEAL PD 101 SOLUTION WITH 0.5% DEXTROSE [Suspect]
     Indication: CONGENITAL CYSTIC KIDNEY DISEASE
     Route: 033
  2. DIANEAL PD4 SOLUTION WITH 1.5% DEXTROSE AND 2.5 MEQ/L CALCIUM [Suspect]
     Indication: CONGENITAL CYSTIC KIDNEY DISEASE
     Route: 033

REACTIONS (3)
  - Renal disorder [Recovered/Resolved]
  - Vesicoureteric reflux [Recovering/Resolving]
  - Vomiting [Recovered/Resolved]
